FAERS Safety Report 9039271 (Version 1)
Quarter: 2013Q1

REPORT INFORMATION
  Report Type: Spontaneous
  Country: US (occurrence: None)
  Receive Date: 20130123
  Receipt Date: 20130123
  Transmission Date: 20140127
  Serious: No
  Sender: FDA-Public Use
  Company Number: None

PATIENT
  Age: 60 Year
  Sex: Female

DRUGS (4)
  1. FORTEO [Suspect]
     Indication: OSTEOPOROSIS
     Dates: start: 20121002, end: 20130122
  2. NEXIUM [Concomitant]
  3. TRAZODONE [Concomitant]
  4. ZOLOFT [Concomitant]

REACTIONS (1)
  - Rash macular [None]
